FAERS Safety Report 24095970 (Version 1)
Quarter: 2024Q3

REPORT INFORMATION
  Report Type: Spontaneous
  Country: CN (occurrence: CN)
  Receive Date: 20240716
  Receipt Date: 20240716
  Transmission Date: 20241016
  Serious: Yes (Death, Other)
  Sender: JOHNSON AND JOHNSON
  Company Number: CN-JNJFOC-20240724991

PATIENT

DRUGS (1)
  1. BOSENTAN [Suspect]
     Active Substance: BOSENTAN
     Indication: Product used for unknown indication
     Route: 048

REACTIONS (21)
  - Death [Fatal]
  - Pneumonia [Unknown]
  - Pulmonary arterial hypertension [Unknown]
  - Cardiac failure [Unknown]
  - Pulmonary oedema [Unknown]
  - Hypokalaemia [Unknown]
  - Congestive hepatopathy [Unknown]
  - Dyspnoea [Unknown]
  - Diarrhoea [Unknown]
  - Nausea [Unknown]
  - Headache [Unknown]
  - Fatigue [Unknown]
  - Gene mutation [Unknown]
  - Oxygen consumption increased [Unknown]
  - Catheter site swelling [Unknown]
  - Cough [Unknown]
  - Haemoptysis [Unknown]
  - Catheter site discharge [Unknown]
  - Pyrexia [Unknown]
  - Iron deficiency anaemia [Unknown]
  - Liver function test increased [Unknown]
